FAERS Safety Report 8207274-X (Version None)
Quarter: 2012Q1

REPORT INFORMATION
  Report Type: 
  Country: None (occurrence: None)
  Receive Date: 20120314
  Receipt Date: 20120310
  Transmission Date: 20120608
  Serious: No
  Sender: FDA-Public Use
  Company Number: US-PFIZER INC-2012063725

PATIENT
  Sex: Male

DRUGS (7)
  1. METFORMIN [Concomitant]
     Indication: DIABETES MELLITUS
     Dosage: 1000 MG, 2X/DAY
  2. PLAVIX [Concomitant]
     Indication: CARDIAC DISORDER
     Dosage: UNKNOWN DOSE; DAILY
  3. SIMVASTATIN [Concomitant]
     Indication: BLOOD CHOLESTEROL INCREASED
     Dosage: 40 MG, DAILY
  4. LISINOPRIL [Concomitant]
     Indication: HYPERTENSION
     Dosage: 20 MG, DAILY
  5. ATENOLOL [Concomitant]
     Indication: HYPERTENSION
     Dosage: 25 MG, DAILY
  6. NITROSTAT [Suspect]
     Indication: CHEST PAIN
     Dosage: UNKNOWN DOSE; AS NEEDED
     Dates: start: 20120301
  7. WARFARIN SODIUM [Concomitant]
     Indication: CARDIAC DISORDER
     Dosage: HALF TO ONE TABLET DAILY

REACTIONS (2)
  - DRUG INEFFECTIVE [None]
  - ORAL DISCOMFORT [None]
